FAERS Safety Report 18468408 (Version 4)
Quarter: 2022Q1

REPORT INFORMATION
  Report Type: Spontaneous
  Country: CR (occurrence: CR)
  Receive Date: 20201105
  Receipt Date: 20220317
  Transmission Date: 20220424
  Serious: Yes (Hospitalization)
  Sender: FDA-Public Use
  Company Number: CR-PFIZER INC-2020429381

PATIENT
  Age: 61 Year
  Sex: Female

DRUGS (1)
  1. LIPITOR [Suspect]
     Active Substance: ATORVASTATIN CALCIUM
     Dosage: 80 MG, DAILY
     Route: 048
     Dates: start: 20150915, end: 20200809

REACTIONS (8)
  - Loss of consciousness [Unknown]
  - Fall [Unknown]
  - Contusion [Unknown]
  - Urinary incontinence [Unknown]
  - Cerebral disorder [Unknown]
  - Syncope [Unknown]
  - Infarction [Unknown]
  - Amnesia [Unknown]

NARRATIVE: CASE EVENT DATE: 20200809
